FAERS Safety Report 7050920-7 (Version None)
Quarter: 2010Q4

REPORT INFORMATION
  Report Type: 
  Country: None (occurrence: None)
  Receive Date: 20101018
  Receipt Date: 20101018
  Transmission Date: 20110411
  Serious: Yes (Other)
  Sender: FDA-Public Use
  Company Number: None

PATIENT
  Sex: Female
  Weight: 15.5 kg

DRUGS (1)
  1. GAMMAGARD LIQUID [Suspect]
     Indication: OPSOCLONUS MYOCLONUS
     Dosage: 15 GRAMS EVERY 4 WEEKS IV
     Route: 042
     Dates: start: 20090526, end: 20100929

REACTIONS (2)
  - DERMATITIS DIAPER [None]
  - RASH [None]
